FAERS Safety Report 24740843 (Version 1)
Quarter: 2024Q4

REPORT INFORMATION
  Report Type: Spontaneous
  Country: US (occurrence: US)
  Receive Date: 20241217
  Receipt Date: 20241217
  Transmission Date: 20250114
  Serious: Yes (Death, Hospitalization)
  Sender: AMGEN
  Company Number: US-AMGEN-USASP2024244801

PATIENT
  Age: 69 Year
  Sex: Female

DRUGS (2)
  1. PREDNISONE [Suspect]
     Active Substance: PREDNISONE
     Indication: Acquired haemophilia
     Dosage: 1 MILLIGRAM/KILOGRAM, QD (FOR 7 DAYS)
     Route: 065
  2. RITUXIMAB [Concomitant]
     Active Substance: RITUXIMAB
     Indication: Acquired haemophilia
     Dosage: 375 MILLIGRAM/SQ. METER, QWK

REACTIONS (6)
  - Multiple organ dysfunction syndrome [Fatal]
  - Hernia [Fatal]
  - Jejunal perforation [Fatal]
  - Intestinal ischaemia [Fatal]
  - Abdominal pain [Unknown]
  - Off label use [Unknown]
